FAERS Safety Report 8619347-8 (Version None)
Quarter: 2012Q3

REPORT INFORMATION
  Report Type: 
  Country: None (occurrence: None)
  Receive Date: 20120824
  Receipt Date: 20120815
  Transmission Date: 20120928
  Serious: Yes (Other)
  Sender: FDA-Public Use
  Company Number: AU-NAPPMUNDI-USA-2012-0091603

PATIENT
  Age: 77 Year
  Sex: Female

DRUGS (8)
  1. DIAZEPAM [Concomitant]
     Indication: RESTLESS LEGS SYNDROME
     Dosage: UNK UNK, SEE TEXT
     Route: 048
  2. ESOMEPRAZOLE SODIUM [Concomitant]
     Indication: PRODUCT USED FOR UNKNOWN INDICATION
     Dosage: 40 MG, BID
     Route: 048
  3. DOCUSATE SODIUM W/SENNOSIDE A+B [Concomitant]
     Dosage: 100 MG/ 16 MG
     Route: 048
  4. OXYCODONE HCL [Concomitant]
     Indication: PRODUCT USED FOR UNKNOWN INDICATION
     Dosage: 5 MG, UNK
     Route: 048
  5. ESOMEPRAZOLE SODIUM [Concomitant]
     Dosage: 40 MG, UNK
     Route: 048
  6. TEMAZEPAM [Concomitant]
     Indication: PRODUCT USED FOR UNKNOWN INDICATION
     Dosage: 10 MG, UNK
  7. OXYCODONE HCL [Suspect]
     Indication: PAIN
     Dosage: 50 MG, BID
     Route: 048
  8. CITALOPRAM HYDROBROMIDE [Suspect]
     Indication: PRODUCT USED FOR UNKNOWN INDICATION
     Dosage: 20 MG, DAILY
     Route: 048

REACTIONS (2)
  - SEROTONIN SYNDROME [None]
  - DRUG INTERACTION [None]
